FAERS Safety Report 6717842-X (Version None)
Quarter: 2010Q2

REPORT INFORMATION
  Report Type: 
  Country: None (occurrence: None)
  Receive Date: 20100510
  Receipt Date: 20100420
  Transmission Date: 20101027
  Serious: Yes (Other)
  Sender: FDA-Public Use
  Company Number: US-MERCK-1005USA00281

PATIENT

DRUGS (9)
  1. HYDRODIURIL [Suspect]
     Route: 048
  2. ZOCOR [Suspect]
     Route: 048
  3. ASPIRIN [Suspect]
     Route: 065
  4. OMEGA-3 MARINE TRIGLYCERIDES [Suspect]
     Route: 065
  5. DILTIAZEM HYDROCHLORIDE [Suspect]
     Route: 065
  6. VITAMINS (UNSPECIFIED) [Suspect]
     Route: 065
  7. ACETAMINOPHEN [Suspect]
     Route: 065
  8. METFORMIN [Suspect]
     Route: 065
  9. DIPYRIDAMOLE [Suspect]
     Route: 065

REACTIONS (1)
  - RHABDOMYOLYSIS [None]
